FAERS Safety Report 17584839 (Version 2)
Quarter: 2020Q2

REPORT INFORMATION
  Report Type: Spontaneous
  Country: NL (occurrence: NL)
  Receive Date: 20200326
  Receipt Date: 20200408
  Transmission Date: 20200713
  Serious: Yes (Other)
  Sender: FDA-Public Use
  Company Number: NL-PFIZER INC-2020127156

PATIENT
  Sex: Female
  Weight: 69 kg

DRUGS (4)
  1. ZOLEDRONIC ACID [Suspect]
     Active Substance: ZOLEDRONIC ACID
     Indication: OSTEOPOROSIS
     Dosage: 5 MG, (INFUSION SOLUTION, ONCE A YEAR, 5 MG )
     Dates: start: 20200106, end: 20200106
  2. CALCIUM CARBONATE/COLECALCIFEROL [Concomitant]
     Active Substance: CALCIUM CARBONATE\CHOLECALCIFEROL
     Dosage: 1 DF, UNK (CHEWABLE TABLET, 2,5 G (GRAM)/800 UNIT)
  3. TRAMADOL. [Concomitant]
     Active Substance: TRAMADOL
     Dosage: 50 MG, UNK (CAPSULE, 50 MG (MILLIGRAM)
  4. OMEPRAZOLE. [Concomitant]
     Active Substance: OMEPRAZOLE
     Dosage: 20 MG, (GASTRO-RESISTANT TABLET, 20 MG (MILLIGRAM) TABLET, 20 MG (MILLIGRAM)

REACTIONS (1)
  - Atrial fibrillation [Not Recovered/Not Resolved]
